FAERS Safety Report 18790936 (Version 4)
Quarter: 2021Q2

REPORT INFORMATION
  Report Type: Report from Study
  Country: US (occurrence: US)
  Receive Date: 20210126
  Receipt Date: 20210628
  Transmission Date: 20210717
  Serious: Yes (Other)
  Sender: FDA-Public Use
  Company Number: US-SHIRE-US202020626

PATIENT
  Age: 47 Year
  Sex: Female

DRUGS (1)
  1. CUVITRU [Suspect]
     Active Substance: HUMAN IMMUNOGLOBULIN G
     Indication: PRIMARY IMMUNODEFICIENCY SYNDROME
     Dosage: 12 GRAM, 1X/WEEK
     Route: 065

REACTIONS (36)
  - Weight fluctuation [Unknown]
  - Illness [Unknown]
  - Neck pain [Unknown]
  - Pain in extremity [Unknown]
  - Blood pressure increased [Unknown]
  - Multiple allergies [Unknown]
  - Body temperature increased [Unknown]
  - Condition aggravated [Unknown]
  - Fibromyalgia [Unknown]
  - Migraine [Unknown]
  - Musculoskeletal discomfort [Unknown]
  - Pain in jaw [Unknown]
  - Dizziness [Unknown]
  - Eye irritation [Unknown]
  - Urticaria [Unknown]
  - Fatigue [Unknown]
  - Musculoskeletal chest pain [Unknown]
  - Mast cell activation syndrome [Unknown]
  - Chest discomfort [Unknown]
  - Abdominal discomfort [Unknown]
  - Occult blood [Unknown]
  - Device infusion issue [Unknown]
  - Hot flush [Unknown]
  - Back pain [Not Recovered/Not Resolved]
  - Feeling abnormal [Unknown]
  - Weight decreased [Unknown]
  - Infusion site pain [Unknown]
  - Autoimmune disorder [Unknown]
  - Arthritis [Unknown]
  - Skin discolouration [Unknown]
  - Muscle strain [Unknown]
  - Cough [Unknown]
  - Nausea [Unknown]
  - Ingrowing nail [Unknown]
  - Headache [Unknown]
  - Pain [Unknown]

NARRATIVE: CASE EVENT DATE: 20200122
